FAERS Safety Report 13682651 (Version 2)
Quarter: 2017Q2

REPORT INFORMATION
  Report Type: Spontaneous
  Country: US (occurrence: US)
  Receive Date: 20170623
  Receipt Date: 20170623
  Transmission Date: 20170830
  Serious: No
  Sender: FDA-Public Use
  Company Number: US-MALLINCKRODT-T201603428

PATIENT
  Sex: Male
  Weight: 93 kg

DRUGS (3)
  1. H.P. ACTHAR [Suspect]
     Active Substance: CORTICOTROPIN
     Indication: DERMATOMYOSITIS
     Dosage: 0.2 ML EVERY OTHER DAY
     Route: 058
     Dates: start: 2015
  2. TESTOSTERONE. [Concomitant]
     Active Substance: TESTOSTERONE
     Dosage: UNK
  3. PREDNISONE. [Concomitant]
     Active Substance: PREDNISONE
     Dosage: UNK
     Dates: start: 1991

REACTIONS (8)
  - Haematocrit increased [Unknown]
  - Hypoglycaemia [Unknown]
  - Haemoglobin increased [Unknown]
  - Hypopituitarism [Unknown]
  - Somnolence [Unknown]
  - Nausea [Unknown]
  - Dizziness [Unknown]
  - Hyperhidrosis [Unknown]
